FAERS Safety Report 18751160 (Version 6)
Quarter: 2022Q3

REPORT INFORMATION
  Report Type: Spontaneous
  Country: JP (occurrence: JP)
  Receive Date: 20210118
  Receipt Date: 20220714
  Transmission Date: 20221027
  Serious: Yes (Hospitalization, Other)
  Sender: FDA-Public Use
  Company Number: JP-GSKJP-JP2021JPN008351AA

PATIENT

DRUGS (17)
  1. MEPOLIZUMAB [Suspect]
     Active Substance: MEPOLIZUMAB
     Indication: Eosinophilic granulomatosis with polyangiitis
     Dosage: 100 MG
     Route: 058
     Dates: start: 20200819, end: 20200819
  2. MEPOLIZUMAB [Suspect]
     Active Substance: MEPOLIZUMAB
     Indication: Asthma
     Dosage: 100 MG
     Route: 058
     Dates: start: 20200917, end: 20200917
  3. MEPOLIZUMAB [Suspect]
     Active Substance: MEPOLIZUMAB
     Dosage: 100 MG
     Route: 058
     Dates: start: 20201020, end: 20201020
  4. MEPOLIZUMAB [Suspect]
     Active Substance: MEPOLIZUMAB
     Dosage: 300 MG
     Route: 058
     Dates: start: 20201117, end: 20201117
  5. MEPOLIZUMAB [Suspect]
     Active Substance: MEPOLIZUMAB
     Dosage: 300 MG
     Route: 058
     Dates: start: 20210112, end: 20210112
  6. PREDONINE [Concomitant]
     Active Substance: PREDNISOLONE
     Indication: Asthma
     Dosage: 5 MG, QD IN THE MORNING
     Route: 048
  7. PREDNISOLONE [Concomitant]
     Active Substance: PREDNISOLONE
     Indication: Asthma
     Dosage: 3 MG, QD IN THE MORNING
     Route: 048
     Dates: end: 20201118
  8. PREDNISOLONE [Concomitant]
     Active Substance: PREDNISOLONE
     Dosage: UNK
     Dates: start: 20201119
  9. RISEDRONATE SODIUM [Concomitant]
     Active Substance: RISEDRONATE SODIUM
     Indication: Osteoporosis prophylaxis
     Dosage: 17.5 MG, WE
  10. RABEPRAZOLE SODIUM TABLET [Concomitant]
     Indication: Prophylaxis against gastrointestinal ulcer
     Dosage: 1 DF, QD IN THE EVENING
     Route: 048
  11. ZOLPIDEM TARTRATE [Concomitant]
     Active Substance: ZOLPIDEM TARTRATE
     Indication: Asthma
     Dosage: 1 DF, QD BEFORE SLEEP
  12. LOXOPROFEN SODIUM [Concomitant]
     Active Substance: LOXOPROFEN SODIUM
     Indication: Headache
     Dosage: 60 MG, PRN
  13. BUDEFORU [Concomitant]
     Indication: Asthma
     Dosage: 4 DF, BID
     Route: 055
  14. MONTELUKAST SODIUM [Concomitant]
     Active Substance: MONTELUKAST SODIUM
     Indication: Asthma
     Dosage: 1 DF, QD BEFORE SLEEP
     Route: 048
  15. TAMSULOSIN HYDROCHLORIDE [Concomitant]
     Active Substance: TAMSULOSIN HYDROCHLORIDE
     Indication: Benign prostatic hyperplasia
     Dosage: UNK, QD
  16. KETOPROFEN TAPE [Concomitant]
     Indication: Pain
     Dosage: 40 MG, PRN
  17. CAMPHOR\CAPSICUM\METHYL SALICYLATE [Concomitant]
     Active Substance: CAMPHOR\CAPSICUM\METHYL SALICYLATE
     Indication: Pain
     Dosage: UNK UNK, PRN

REACTIONS (6)
  - Syncope [Recovered/Resolved]
  - Blood pressure decreased [Recovered/Resolved]
  - Nausea [Recovered/Resolved]
  - Cold sweat [Recovered/Resolved]
  - Pallor [Recovered/Resolved]
  - Inappropriate schedule of product administration [Unknown]

NARRATIVE: CASE EVENT DATE: 20201117
